FAERS Safety Report 7233538-2 (Version None)
Quarter: 2011Q1

REPORT INFORMATION
  Report Type: 
  Country: None (occurrence: None)
  Receive Date: 20110110
  Receipt Date: 20110104
  Transmission Date: 20110831
  Serious: Yes (Death)
  Sender: FDA-Public Use
  Company Number: 20084494

PATIENT
  Sex: Male

DRUGS (5)
  1. BUPIVACAINE HCL [Concomitant]
  2. KETAMINE [Concomitant]
  3. LIORESAL [Suspect]
     Indication: MUSCLE SPASTICITY
     Dosage: DAILY, INTRATHECAL
     Route: 037
  4. HYDROMORPHONE HCL [Concomitant]
  5. DROPERIDOL [Concomitant]

REACTIONS (1)
  - MEDICAL DEVICE COMPLICATION [None]
